FAERS Safety Report 14728276 (Version 1)
Quarter: 2018Q2

REPORT INFORMATION
  Report Type: Spontaneous
  Country: LU (occurrence: LU)
  Receive Date: 20180406
  Receipt Date: 20180406
  Transmission Date: 20180711
  Serious: Yes (Hospitalization)
  Sender: FDA-Public Use
  Company Number: LU-TEVA-2018-LU-879178

PATIENT
  Age: 79 Year
  Sex: Male
  Weight: 109.7 kg

DRUGS (12)
  1. PACLITAXEL TEVA [Suspect]
     Active Substance: PACLITAXEL
     Indication: PRODUCT USED FOR UNKNOWN INDICATION
     Route: 041
     Dates: start: 20180206, end: 20180206
  2. CARBOPLATINE HOSPIRA [Suspect]
     Active Substance: CARBOPLATIN
     Indication: PRODUCT USED FOR UNKNOWN INDICATION
     Route: 041
     Dates: start: 20180206, end: 20180206
  3. LASIX [Concomitant]
     Active Substance: FUROSEMIDE
  4. SINTROM 4 MG, COMPRIM? QUADRIS?CABLE [Concomitant]
  5. SINTROM 4 MG, COMPRIM? QUADRIS?CABLE [Concomitant]
  6. RANITIDINE BASE [Concomitant]
     Active Substance: RANITIDINE HYDROCHLORIDE
     Indication: PREMEDICATION
     Dates: start: 20180206, end: 20180206
  7. DIGOXINE [Concomitant]
     Active Substance: DIGOXIN
  8. TAMSULOSINE [Concomitant]
     Active Substance: TAMSULOSIN HYDROCHLORIDE
  9. JANUMET [Concomitant]
     Active Substance: METFORMIN HYDROCHLORIDE\SITAGLIPTIN PHOSPHATE
  10. TEMESTA (LORAZEPAM) [Concomitant]
     Active Substance: LORAZEPAM
  11. METHYLPREDNISOLONE. [Concomitant]
     Active Substance: METHYLPREDNISOLONE
     Indication: PREMEDICATION
     Route: 051
     Dates: start: 20180206, end: 20180206
  12. TORASEMIDE [Concomitant]
     Active Substance: TORSEMIDE

REACTIONS (3)
  - Hypoxia [Recovering/Resolving]
  - Vertigo [Recovering/Resolving]
  - Erythema [Recovering/Resolving]

NARRATIVE: CASE EVENT DATE: 20180206
